FAERS Safety Report 15632879 (Version 1)
Quarter: 2018Q4

REPORT INFORMATION
  Report Type: Report from Study
  Country: CA (occurrence: CA)
  Receive Date: 20181119
  Receipt Date: 20181119
  Transmission Date: 20190205
  Serious: Yes (Other)
  Sender: FDA-Public Use
  Company Number: CA-JNJFOC-20181004701

PATIENT
  Sex: Female

DRUGS (1)
  1. STELARA [Suspect]
     Active Substance: USTEKINUMAB
     Indication: CROHN^S DISEASE
     Dosage: STRENGTH = 90 MG
     Route: 058

REACTIONS (11)
  - Pneumonia [Unknown]
  - Intracranial aneurysm [Unknown]
  - Constipation [Unknown]
  - Swelling of eyelid [Unknown]
  - Diarrhoea [Unknown]
  - Product use issue [Unknown]
  - General physical health deterioration [Unknown]
  - Balance disorder [Unknown]
  - Amnesia [Unknown]
  - Off label use [Unknown]
  - Abdominal pain [Unknown]
